FAERS Safety Report 6531196-3 (Version None)
Quarter: 2010Q1

REPORT INFORMATION
  Report Type: 
  Country: None (occurrence: None)
  Receive Date: 20100108
  Receipt Date: 20091225
  Transmission Date: 20100710
  Serious: Yes (Hospitalization)
  Sender: FDA-Public Use
  Company Number: PHHY2009JP52106

PATIENT
  Age: 9 Year
  Sex: Male

DRUGS (2)
  1. TEGRETOL [Suspect]
     Indication: OPPOSITIONAL DEFIANT DISORDER
     Dosage: 200 MG/DAY
     Route: 048
     Dates: end: 20091123
  2. RISPERDAL [Suspect]
     Indication: OPPOSITIONAL DEFIANT DISORDER
     Dosage: 1 MG/DAY
     Route: 048
     Dates: start: 20090901, end: 20091123

REACTIONS (17)
  - ASPARTATE AMINOTRANSFERASE INCREASED [None]
  - BLOOD ALKALINE PHOSPHATASE INCREASED [None]
  - BLOOD LACTATE DEHYDROGENASE INCREASED [None]
  - C-REACTIVE PROTEIN INCREASED [None]
  - DERMATITIS EXFOLIATIVE [None]
  - DRUG ERUPTION [None]
  - DRUG RASH WITH EOSINOPHILIA AND SYSTEMIC SYMPTOMS [None]
  - ERYTHEMA [None]
  - ERYTHEMA MULTIFORME [None]
  - LIVER DISORDER [None]
  - LYMPHOCYTE COUNT DECREASED [None]
  - LYMPHOCYTE STIMULATION TEST POSITIVE [None]
  - PLATELET COUNT DECREASED [None]
  - PRURITUS [None]
  - PURPURA [None]
  - PYREXIA [None]
  - URTICARIA [None]
